FAERS Safety Report 9386922 (Version 1)
Quarter: 2013Q3

REPORT INFORMATION
  Report Type: Spontaneous
  Country: US (occurrence: None)
  Receive Date: 20130703
  Receipt Date: 20130703
  Transmission Date: 20140515
  Serious: Yes (Other)
  Sender: FDA-Public Use
  Company Number: None

PATIENT
  Age: 74 Year
  Sex: Male
  Weight: 124.74 kg

DRUGS (8)
  1. DOXYCYCLINE [Suspect]
     Indication: CYST
     Dates: start: 20130629, end: 20130701
  2. DOXYCYCLINE [Suspect]
     Indication: SWELLING
     Dates: start: 20130629, end: 20130701
  3. DOXYCYCLINE [Suspect]
     Indication: RASH
     Dates: start: 20130629, end: 20130701
  4. FINASTERIDE [Concomitant]
  5. LISINOPRIL [Concomitant]
  6. SYMBICORT [Concomitant]
  7. OMAGA 3 FISH OIL [Concomitant]
  8. MULIT VITAMIN [Concomitant]

REACTIONS (4)
  - Swelling [None]
  - Rash [None]
  - Myalgia [None]
  - Product quality issue [None]
